FAERS Safety Report 5757529-3 (Version None)
Quarter: 2008Q2

REPORT INFORMATION
  Report Type: 
  Country: None (occurrence: None)
  Receive Date: 20080603
  Receipt Date: 20080421
  Transmission Date: 20081010
  Serious: Yes (Other)
  Sender: FDA-Public Use
  Company Number: DE-PFIZER INC-2008045534

PATIENT
  Sex: Female

DRUGS (9)
  1. ATARAX [Suspect]
     Indication: PRURITUS
     Dosage: DAILY DOSE:25MG
     Route: 048
     Dates: start: 20071027, end: 20071029
  2. TELFAST [Suspect]
     Indication: PRURITUS
     Dosage: DAILY DOSE:540MG
     Route: 048
     Dates: start: 20071027, end: 20071029
  3. RANITIDINE HCL [Suspect]
     Indication: PROPHYLAXIS AGAINST GASTROINTESTINAL ULCER
     Dosage: DAILY DOSE:150MG
     Route: 048
     Dates: start: 20071027, end: 20071029
  4. ENBREL [Concomitant]
     Indication: PSORIASIS
     Dosage: DAILY DOSE:25MG
     Route: 058
     Dates: start: 20070218, end: 20071028
  5. ENALAPRIL MALEATE [Concomitant]
     Dosage: DAILY DOSE:2.5MG
     Dates: start: 20060201, end: 20071030
  6. ASPIRIN [Concomitant]
     Dosage: DAILY DOSE:100MG
     Dates: start: 19980101, end: 20071030
  7. SIMVASTATIN [Concomitant]
     Dosage: DAILY DOSE:5MG
     Dates: start: 20020101, end: 20071030
  8. ISOZID [Concomitant]
     Dosage: DAILY DOSE:300MG
     Dates: start: 20070118, end: 20071030
  9. DECORTIN-H [Concomitant]
     Dosage: DAILY DOSE:70MG
     Dates: start: 20071027, end: 20071029

REACTIONS (1)
  - HEPATITIS [None]
